FAERS Safety Report 6963432-3 (Version None)
Quarter: 2010Q3

REPORT INFORMATION
  Report Type: 
  Country: None (occurrence: None)
  Receive Date: 20100902
  Receipt Date: 20100823
  Transmission Date: 20110219
  Serious: Yes (Death)
  Sender: FDA-Public Use
  Company Number: B0655308A

PATIENT
  Age: 40 Year
  Sex: Female
  Weight: 121.54 kg

DRUGS (13)
  1. MARAVIROC [Suspect]
     Indication: HIV INFECTION
     Dosage: 150MG TWICE PER DAY
     Route: 048
     Dates: start: 20080409, end: 20100220
  2. PROPOXYPHENE HCL AND ACETAMINOPHEN [Suspect]
  3. EPZICOM [Concomitant]
     Route: 048
     Dates: start: 20060118, end: 20100220
  4. TRUVADA [Concomitant]
     Route: 048
     Dates: start: 20050119, end: 20100220
  5. FOSAMPRENAVIR [Concomitant]
     Route: 048
     Dates: start: 20050119, end: 20100220
  6. NORVIR [Concomitant]
     Route: 048
     Dates: start: 20041201, end: 20100220
  7. VIREAD [Concomitant]
     Route: 048
     Dates: start: 20041201, end: 20100220
  8. LASIX [Concomitant]
     Route: 048
     Dates: start: 20071212, end: 20100220
  9. LOPERAMIDE [Concomitant]
     Route: 048
     Dates: start: 20080522, end: 20100220
  10. LORATADINE [Concomitant]
     Route: 048
     Dates: start: 20060713, end: 20100220
  11. FERROUS GLUCONATE [Concomitant]
     Route: 048
     Dates: start: 20080522, end: 20100220
  12. VALCYTE [Concomitant]
     Route: 048
     Dates: start: 20040201, end: 20100220
  13. MULTI-VITAMINS [Concomitant]
     Route: 048
     Dates: start: 20050119, end: 20100220

REACTIONS (1)
  - COMPLETED SUICIDE [None]
